FAERS Safety Report 7182976-5 (Version None)
Quarter: 2010Q4

REPORT INFORMATION
  Report Type: 
  Country: None (occurrence: None)
  Receive Date: 20101210
  Receipt Date: 20101119
  Transmission Date: 20110411
  Serious: No
  Sender: FDA-Public Use
  Company Number: 2010-01016

PATIENT
  Sex: Male

DRUGS (3)
  1. ZICAM ALLERGY RELIEF NASAL GEL [Suspect]
     Indication: NASOPHARYNGITIS
     Dosage: AS DIRECTED X 4 YEARS
     Dates: start: 20000101, end: 20040101
  2. ZICAM COLD REMEDY NASAL GEL [Suspect]
     Indication: NASOPHARYNGITIS
     Dosage: AS DIRECTED X 4 YEARS
     Dates: start: 20000101, end: 20040101
  3. ZICAM COLD REMEDY GEL SWABS [Suspect]
     Indication: NASOPHARYNGITIS
     Dosage: AS DIRECTED X 4 YEARS
     Dates: start: 20000101, end: 20040101

REACTIONS (2)
  - AGEUSIA [None]
  - ANOSMIA [None]
